FAERS Safety Report 4796550-9 (Version None)
Quarter: 2005Q4

REPORT INFORMATION
  Report Type: 
  Country: None (occurrence: None)
  Receive Date: 20051007
  Receipt Date: 20051003
  Transmission Date: 20060501
  Serious: Yes (Hospitalization)
  Sender: FDA-Public Use
  Company Number: 200510320BFR

PATIENT
  Age: 4 Month
  Sex: Female
  Weight: 7.7 kg

DRUGS (7)
  1. CIPROFLOXACIN HCL [Suspect]
     Indication: URINARY TRACT INFECTION
     Dosage: 20 MG/KG, TOTAL DAILY, ORAL
     Route: 048
     Dates: start: 20050222
  2. DOLIPRANE [Concomitant]
  3. PERFALGAN [Concomitant]
  4. AMIKLIN [Concomitant]
  5. FORTUM [Concomitant]
  6. DAKTARIN [Concomitant]
  7. ALFATIL [Concomitant]

REACTIONS (1)
  - RASH [None]
